FAERS Safety Report 4798239-9 (Version None)
Quarter: 2005Q4

REPORT INFORMATION
  Report Type: 
  Country: None (occurrence: None)
  Receive Date: 20051011
  Receipt Date: 20051011
  Transmission Date: 20060501
  Serious: Yes (Other)
  Sender: FDA-Public Use
  Company Number: None

PATIENT
  Age: 52 Year
  Sex: Female

DRUGS (3)
  1. DOCETAXEL [Suspect]
     Indication: BREAST CANCER RECURRENT
     Dosage: 100MG/M2
     Dates: start: 20030922
  2. CARBOPLATIN [Suspect]
  3. TAXOTERE [Concomitant]

REACTIONS (5)
  - ALOPECIA [None]
  - ARTHRALGIA [None]
  - HAIR GROWTH ABNORMAL [None]
  - PERIPHERAL SENSORY NEUROPATHY [None]
  - RASH [None]
